FAERS Safety Report 14901048 (Version 2)
Quarter: 2018Q2

REPORT INFORMATION
  Report Type: Report from Study
  Country: US (occurrence: US)
  Receive Date: 20180516
  Receipt Date: 20180518
  Transmission Date: 20180711
  Serious: Yes (Other)
  Sender: FDA-Public Use
  Company Number: US-PFIZER INC-2018192360

PATIENT

DRUGS (2)
  1. FLUDARABINE PHOSPHATE. [Suspect]
     Active Substance: FLUDARABINE PHOSPHATE
     Dosage: 30 MG/M2, DAILY (WAS GIVEN ON T-6 THROUGH T-2 )
  2. BUSULFAN. [Suspect]
     Active Substance: BUSULFAN
     Dosage: 4800 MICROM.MINUTE, DAILY

REACTIONS (3)
  - Venoocclusive disease [Unknown]
  - Mucosal inflammation [Unknown]
  - Hyperbilirubinaemia [Unknown]
